FAERS Safety Report 12910366 (Version 2)
Quarter: 2016Q4

REPORT INFORMATION
  Report Type: Report from Study
  Country: AR (occurrence: AR)
  Receive Date: 20161104
  Receipt Date: 20161121
  Transmission Date: 20170207
  Serious: Yes (Other)
  Sender: FDA-Public Use
  Company Number: PHHY2016AR151057

PATIENT
  Sex: Male

DRUGS (1)
  1. TRILEPTAL [Suspect]
     Active Substance: OXCARBAZEPINE
     Indication: EPILEPSY
     Dosage: 600 MG, (APPROXIMATELY 6 YEARS AGO)
     Route: 065

REACTIONS (2)
  - Epilepsy [Unknown]
  - Chronic obstructive pulmonary disease [Unknown]
